FAERS Safety Report 6313273-5 (Version None)
Quarter: 2009Q3

REPORT INFORMATION
  Report Type: 
  Country: None (occurrence: None)
  Receive Date: 20090818
  Receipt Date: 20090810
  Transmission Date: 20100115
  Serious: Yes (Hospitalization, Congenital Anomaly)
  Sender: FDA-Public Use
  Company Number: A0726402A

PATIENT
  Sex: Female
  Weight: 2.2 kg

DRUGS (6)
  1. PAXIL [Suspect]
     Indication: POSTPARTUM DEPRESSION
     Dosage: 10MG TWICE PER DAY
     Dates: start: 20050331, end: 20060917
  2. PAXIL CR [Suspect]
     Indication: POSTPARTUM DEPRESSION
     Dosage: 12.5MG PER DAY
     Dates: start: 20020420, end: 20051128
  3. GEODON [Concomitant]
     Dates: start: 20030421
  4. DEPAKOTE ER [Concomitant]
     Dates: start: 20020101, end: 20080301
  5. GABITRIL [Concomitant]
     Dates: start: 20030912, end: 20070601
  6. COGENTIN [Concomitant]
     Dates: start: 20050106, end: 20070601

REACTIONS (6)
  - ATRIAL SEPTAL DEFECT [None]
  - ATRIOVENTRICULAR SEPTAL DEFECT [None]
  - COLLAPSE OF LUNG [None]
  - DEVELOPMENTAL DELAY [None]
  - DRUG EXPOSURE DURING PREGNANCY [None]
  - DYSMORPHISM [None]
